FAERS Safety Report 25348423 (Version 5)
Quarter: 2025Q3

REPORT INFORMATION
  Report Type: Report from Study
  Country: US (occurrence: US)
  Receive Date: 20250522
  Receipt Date: 20250909
  Transmission Date: 20251020
  Serious: Yes (Other)
  Sender: NOVARTIS
  Company Number: US-002147023-NVSC2025US080910

PATIENT
  Age: 33 Year
  Sex: Male

DRUGS (1)
  1. KESIMPTA [Suspect]
     Active Substance: OFATUMUMAB
     Indication: Product used for unknown indication
     Dosage: 20 MG, QMO
     Route: 058

REACTIONS (15)
  - Alcoholism [Unknown]
  - Nasal congestion [Unknown]
  - Pain in extremity [Unknown]
  - Insomnia [Unknown]
  - Oropharyngeal pain [Unknown]
  - Pyrexia [Unknown]
  - Wheezing [Unknown]
  - Nausea [Unknown]
  - Night sweats [Unknown]
  - Headache [Unknown]
  - Feeling of body temperature change [Unknown]
  - Decreased immune responsiveness [Unknown]
  - Tremor [Unknown]
  - Fatigue [Unknown]
  - Decreased appetite [Unknown]

NARRATIVE: CASE EVENT DATE: 20250903
